FAERS Safety Report 4716718-7 (Version None)
Quarter: 2005Q3

REPORT INFORMATION
  Report Type: 
  Country: None (occurrence: None)
  Receive Date: 20050714
  Receipt Date: 20050707
  Transmission Date: 20060218
  Serious: Yes (Disabling)
  Sender: FDA-Public Use
  Company Number: 05H-163-0299699-00

PATIENT
  Sex: Male

DRUGS (2)
  1. EPINEPHRINE 1 MG/ML INJECTION, USP, 1 ML AMPULE (EPINEPHRINE) [Suspect]
     Dates: start: 20050517
  2. HOME MEDICATION [Concomitant]

REACTIONS (4)
  - BLINDNESS [None]
  - EYE INFECTION STAPHYLOCOCCAL [None]
  - POST PROCEDURAL COMPLICATION [None]
  - POSTOPERATIVE INFECTION [None]
